FAERS Safety Report 24721771 (Version 1)
Quarter: 2024Q4

REPORT INFORMATION
  Report Type: Spontaneous
  Country: US (occurrence: None)
  Receive Date: 20241210
  Receipt Date: 20241210
  Transmission Date: 20250115
  Serious: Yes (Hospitalization)
  Sender: Public
  Company Number: None

PATIENT
  Sex: Female

DRUGS (8)
  1. OPSUMIT [Suspect]
     Active Substance: MACITENTAN
     Indication: Pulmonary arterial hypertension
     Dosage: FREQUENCY : DAILY;?
     Route: 048
     Dates: start: 202312
  2. KEFLEX [Suspect]
     Active Substance: CEPHALEXIN
  3. CARDURA [Suspect]
     Active Substance: DOXAZOSIN MESYLATE
  4. FLOMAX [Suspect]
     Active Substance: TAMSULOSIN HYDROCHLORIDE
  5. CEFPODOXINME [Concomitant]
  6. FLOMAX [Concomitant]
     Active Substance: TAMSULOSIN HYDROCHLORIDE
  7. UPTRAVI [Concomitant]
     Active Substance: SELEXIPAG
  8. TYVASO DPI MAINT KIT POW [Concomitant]

REACTIONS (3)
  - Urinary tract infection [None]
  - Dysuria [None]
  - Blood pressure decreased [None]
